FAERS Safety Report 5953218-0 (Version None)
Quarter: 2008Q4

REPORT INFORMATION
  Report Type: 
  Country: None (occurrence: None)
  Receive Date: 20081114
  Receipt Date: 20081105
  Transmission Date: 20090506
  Serious: Yes (Hospitalization)
  Sender: FDA-Public Use
  Company Number: PHHY2008JP26639

PATIENT
  Age: 58 Year
  Sex: Female

DRUGS (6)
  1. LUDIOMIL [Suspect]
     Indication: DEPRESSION
     Dosage: 60 MG, QD
     Route: 048
     Dates: start: 20080907, end: 20080911
  2. LUDIOMIL [Suspect]
     Dosage: 75 MG
     Route: 048
     Dates: start: 20080912, end: 20081009
  3. LUDIOMIL [Suspect]
     Dosage: 150 MG
     Route: 048
     Dates: start: 20081010, end: 20081016
  4. LUDIOMIL [Suspect]
     Dosage: 75 MG, QD
     Route: 048
     Dates: start: 20081017
  5. DEPAKENE [Concomitant]
  6. DOGMATYL [Concomitant]
     Dosage: 150 MG
     Route: 048
     Dates: start: 20080906

REACTIONS (2)
  - CONVULSION [None]
  - DEPRESSION [None]
